FAERS Safety Report 9250234 (Version 1)
Quarter: 2013Q2

REPORT INFORMATION
  Report Type: Spontaneous
  Country: US (occurrence: US)
  Receive Date: 20130424
  Receipt Date: 20130424
  Transmission Date: 20140414
  Serious: No
  Sender: FDA-Public Use
  Company Number: US-009507513-1304USA009981

PATIENT
  Age: 60 Year
  Sex: Female

DRUGS (2)
  1. SAPHRIS [Suspect]
     Indication: OBSESSIVE-COMPULSIVE DISORDER
     Dosage: 5 MG/ FREQUENCY UNSPECIFIED
     Route: 060
  2. SAPHRIS [Suspect]
     Indication: DEPRESSION

REACTIONS (1)
  - Drug hypersensitivity [Recovered/Resolved]
